FAERS Safety Report 9800403 (Version 1)
Quarter: 2014Q1

REPORT INFORMATION
  Report Type: Report from Study
  Country: US (occurrence: US)
  Receive Date: 20140107
  Receipt Date: 20140107
  Transmission Date: 20141002
  Serious: Yes (Death)
  Sender: FDA-Public Use
  Company Number: US-ROCHE-1320066

PATIENT
  Age: 64 Year
  Sex: Male

DRUGS (6)
  1. LUCENTIS [Suspect]
     Indication: DIABETIC RETINOPATHY
     Route: 050
     Dates: start: 20090709
  2. LIDOCAINE [Concomitant]
     Indication: ANAESTHESIA
     Route: 061
  3. VIGAMOX [Concomitant]
     Dosage: X 4 DAYS AFTER EACH LUCENTIS INJECTION
     Route: 065
     Dates: start: 20111005
  4. BETADINE [Concomitant]
  5. KENALOG (UNITED STATES) [Concomitant]
     Dosage: 4MG/0.1ML
     Route: 050
     Dates: start: 20110525
  6. POLYTRIM [Concomitant]
     Dosage: TID OS
     Route: 065

REACTIONS (6)
  - Death [Fatal]
  - Visual acuity reduced [Unknown]
  - Paracentesis [Unknown]
  - Visual impairment [Unknown]
  - Colon cancer recurrent [Unknown]
  - Off label use [Unknown]
